FAERS Safety Report 13372125 (Version 1)
Quarter: 2017Q1

REPORT INFORMATION
  Report Type: Other
  Country: CA (occurrence: CA)
  Receive Date: 20170327
  Receipt Date: 20170327
  Transmission Date: 20170429
  Serious: Yes (Other)
  Sender: FDA-Public Use
  Company Number: CA-AJANTA PHARMA USA INC.-1064659

PATIENT
  Age: 66 Year
  Sex: Male

DRUGS (3)
  1. PAROXETINE. [Concomitant]
     Active Substance: PAROXETINE
  2. BACLOFEN. [Concomitant]
     Active Substance: BACLOFEN
  3. ARIPIPRAZOLE (ANDA 206174) [Suspect]
     Active Substance: ARIPIPRAZOLE
     Indication: AGGRESSION

REACTIONS (3)
  - Withdrawal syndrome [Unknown]
  - Tardive dyskinesia [Not Recovered/Not Resolved]
  - Parkinsonism [Recovering/Resolving]
